FAERS Safety Report 6022672-0 (Version None)
Quarter: 2008Q4

REPORT INFORMATION
  Report Type: 
  Country: None (occurrence: None)
  Receive Date: 20081230
  Receipt Date: 20081224
  Transmission Date: 20090506
  Serious: Yes (Other)
  Sender: FDA-Public Use
  Company Number: AU-ABBOTT-08P-008-0494499-00

PATIENT
  Age: 50 Year
  Sex: Female

DRUGS (2)
  1. HUMIRA [Suspect]
     Indication: PSORIASIS
     Route: 058
     Dates: start: 20081101
  2. METHOTREXATE [Concomitant]
     Indication: PSORIASIS
     Dosage: HIGH DOSE

REACTIONS (4)
  - ACTINIC KERATOSIS [None]
  - LABORATORY TEST ABNORMAL [None]
  - LYMPHOCYTOSIS [None]
  - POSTMENOPAUSAL HAEMORRHAGE [None]
